FAERS Safety Report 17753738 (Version 2)
Quarter: 2020Q2

REPORT INFORMATION
  Report Type: Spontaneous
  Country: US (occurrence: US)
  Receive Date: 20200507
  Receipt Date: 20200514
  Transmission Date: 20200714
  Serious: No
  Sender: FDA-Public Use
  Company Number: US-UNITED THERAPEUTICS-UNT-2020-006639

PATIENT
  Age: 46 Year
  Sex: Female
  Weight: 75.74 kg

DRUGS (5)
  1. OPSUMIT [Concomitant]
     Active Substance: MACITENTAN
     Indication: PRODUCT USED FOR UNKNOWN INDICATION
     Dosage: UNK
     Route: 065
  2. REMODULIN [Suspect]
     Active Substance: TREPROSTINIL
     Indication: PULMONARY ARTERIAL HYPERTENSION
     Dosage: UNK UNK, CONTINUING
     Route: 058
     Dates: start: 20170303
  3. DILTIAZEM. [Concomitant]
     Active Substance: DILTIAZEM
     Indication: PRODUCT USED FOR UNKNOWN INDICATION
     Dosage: UNK
     Route: 065
  4. ADEMPAS [Concomitant]
     Active Substance: RIOCIGUAT
     Indication: PRODUCT USED FOR UNKNOWN INDICATION
     Dosage: UNK
     Route: 065
  5. REMODULIN [Suspect]
     Active Substance: TREPROSTINIL
     Dosage: 0.075 ?G/KG, CONTINUING
     Route: 058

REACTIONS (10)
  - Infusion site haemorrhage [Unknown]
  - Respiration abnormal [Unknown]
  - Device infusion issue [Unknown]
  - Device dislocation [Unknown]
  - Subcutaneous drug absorption impaired [Unknown]
  - Diarrhoea [Not Recovered/Not Resolved]
  - Dizziness postural [Unknown]
  - Infusion site pain [Unknown]
  - Malaise [Unknown]
  - Infusion site infection [Unknown]

NARRATIVE: CASE EVENT DATE: 20200502
